FAERS Safety Report 4957366-3 (Version None)
Quarter: 2006Q1

REPORT INFORMATION
  Report Type: 
  Country: None (occurrence: None)
  Receive Date: 20060327
  Receipt Date: 20060317
  Transmission Date: 20060701
  Serious: Yes (Other)
  Sender: FDA-Public Use
  Company Number: 231677K06USA

PATIENT
  Age: 40 Year
  Sex: Female

DRUGS (2)
  1. REBIF [Suspect]
     Indication: MULTIPLE SCLEROSIS
     Dosage: 44 MCG, 3 IN 1 WEEKS, SUBCUTANEOUS
     Route: 058
     Dates: start: 20060130, end: 20060210
  2. TYLENOL PM (TYLENOL PM) [Suspect]
     Dosage: 1 IN 1 DAYS

REACTIONS (5)
  - ALANINE AMINOTRANSFERASE INCREASED [None]
  - BALANCE DISORDER [None]
  - BLOOD BILIRUBIN INCREASED [None]
  - DIZZINESS [None]
  - JAUNDICE [None]
